FAERS Safety Report 6999861-1 (Version None)
Quarter: 2010Q3

REPORT INFORMATION
  Report Type: 
  Country: None (occurrence: None)
  Receive Date: 20100920
  Receipt Date: 20070711
  Transmission Date: 20110219
  Serious: Yes (Hospitalization)
  Sender: FDA-Public Use
  Company Number: US-ASTRAZENECA-2006UW26063

PATIENT
  Age: 51 Year
  Sex: Female
  Weight: 64 kg

DRUGS (15)
  1. SEROQUEL [Suspect]
     Indication: DEPRESSION
     Route: 048
     Dates: start: 20000101, end: 20010101
  2. SEROQUEL [Suspect]
     Dosage: 25-400 MG
     Route: 048
     Dates: start: 20011220
  3. THORAZINE [Concomitant]
     Indication: AGITATION
     Dates: start: 20010421
  4. THORAZINE [Concomitant]
     Route: 048
  5. TRAZODONE HCL [Concomitant]
     Dosage: 100-200 MG
     Route: 048
     Dates: start: 20000920
  6. GLUCOTROL [Concomitant]
     Indication: TYPE 2 DIABETES MELLITUS
     Dates: start: 20011220
  7. FOLIC ACID [Concomitant]
     Dates: start: 20011220
  8. ATIVAN [Concomitant]
     Indication: ANXIETY
     Route: 048
     Dates: start: 20000920
  9. ZANTAC [Concomitant]
     Route: 048
     Dates: start: 20000920
  10. PROZAC [Concomitant]
     Route: 048
     Dates: start: 20000920
  11. PANCREASE [Concomitant]
     Dosage: ONE CAPSULE THREE TIMES A DAY
     Route: 048
     Dates: start: 20000920
  12. PANCREASE [Concomitant]
     Dosage: 2 TABLETS THREE TIMES A DAY
     Route: 048
     Dates: start: 20010421
  13. CELEBREX [Concomitant]
     Dates: start: 20000920
  14. NORVASC [Concomitant]
     Route: 048
     Dates: start: 20010221
  15. CLONIDINE [Concomitant]
     Dates: start: 20010421

REACTIONS (5)
  - DIABETES MELLITUS [None]
  - DIABETES MELLITUS INADEQUATE CONTROL [None]
  - GLUCOSE TOLERANCE IMPAIRED [None]
  - HYPERGLYCAEMIC HYPEROSMOLAR NONKETOTIC SYNDROME [None]
  - TYPE 2 DIABETES MELLITUS [None]
